FAERS Safety Report 7583245-1 (Version None)
Quarter: 2011Q2

REPORT INFORMATION
  Report Type: 
  Country: None (occurrence: None)
  Receive Date: 20110630
  Receipt Date: 20110623
  Transmission Date: 20111010
  Serious: Yes (Hospitalization, Other)
  Sender: FDA-Public Use
  Company Number: US-ACTELION-A-US2011-49916

PATIENT

DRUGS (4)
  1. LASIX [Concomitant]
  2. COUMADIN [Concomitant]
  3. REVATIO [Concomitant]
  4. TRACLEER [Suspect]
     Indication: PULMONARY ARTERIAL HYPERTENSION
     Dosage: 125 MG, BID
     Route: 048
     Dates: start: 20110125

REACTIONS (8)
  - HYPONATRAEMIA [None]
  - INAPPROPRIATE ANTIDIURETIC HORMONE SECRETION [None]
  - MUSCULAR WEAKNESS [None]
  - URINARY TRACT INFECTION [None]
  - HYPOVOLAEMIA [None]
  - DYSARTHRIA [None]
  - FLUID OVERLOAD [None]
  - LETHARGY [None]
